FAERS Safety Report 25681569 (Version 1)
Quarter: 2025Q3

REPORT INFORMATION
  Report Type: Report from Study
  Country: CN (occurrence: CN)
  Receive Date: 20250814
  Receipt Date: 20250814
  Transmission Date: 20251021
  Serious: Yes (Other)
  Sender: ROCHE
  Company Number: CN-ROCHE-3469057

PATIENT
  Age: 53 Year
  Sex: Female
  Weight: 44.7 kg

DRUGS (51)
  1. POLATUZUMAB VEDOTIN [Suspect]
     Active Substance: POLATUZUMAB VEDOTIN
     Indication: Diffuse large B-cell lymphoma
     Route: 042
     Dates: start: 20231019, end: 20231019
  2. POLATUZUMAB VEDOTIN [Suspect]
     Active Substance: POLATUZUMAB VEDOTIN
     Route: 042
     Dates: start: 20231111, end: 20231111
  3. RITUXIMAB [Suspect]
     Active Substance: RITUXIMAB
     Indication: Diffuse large B-cell lymphoma
     Route: 042
     Dates: start: 20231018, end: 20231018
  4. OXALIPLATIN [Suspect]
     Active Substance: OXALIPLATIN
     Indication: Diffuse large B-cell lymphoma
     Route: 042
     Dates: start: 20231019, end: 20231019
  5. OXALIPLATIN [Suspect]
     Active Substance: OXALIPLATIN
     Route: 042
     Dates: start: 20231112, end: 20231112
  6. OXALIPLATIN [Suspect]
     Active Substance: OXALIPLATIN
     Route: 048
     Dates: start: 20231111, end: 20231125
  7. TUCIDINOSTAT [Suspect]
     Active Substance: TUCIDINOSTAT
     Indication: Diffuse large B-cell lymphoma
     Route: 048
     Dates: start: 20231019, end: 20231019
  8. TUCIDINOSTAT [Suspect]
     Active Substance: TUCIDINOSTAT
     Route: 048
     Dates: start: 20231111, end: 20231125
  9. TUCIDINOSTAT [Suspect]
     Active Substance: TUCIDINOSTAT
     Route: 048
     Dates: start: 20231019, end: 20231101
  10. VENCLEXTA [Suspect]
     Active Substance: VENETOCLAX
     Indication: Diffuse large B-cell lymphoma
     Route: 048
     Dates: end: 20231202
  11. GEMCITABINE [Suspect]
     Active Substance: GEMCITABINE
     Indication: Diffuse large B-cell lymphoma
     Route: 042
     Dates: start: 20231019, end: 20231019
  12. GEMCITABINE [Suspect]
     Active Substance: GEMCITABINE
     Route: 042
     Dates: start: 20231112, end: 20231112
  13. Promethazine hydrochloride inj [Concomitant]
     Route: 030
     Dates: start: 20231019, end: 20231020
  14. Promethazine hydrochloride inj [Concomitant]
     Route: 030
     Dates: start: 20231018, end: 20231020
  15. Promethazine hydrochloride inj [Concomitant]
     Route: 030
     Dates: start: 20231111, end: 20231111
  16. Potassium chloride sustained-release tablets [Concomitant]
     Route: 048
     Dates: start: 20231016, end: 20231020
  17. Potassium chloride sustained-release tablets [Concomitant]
     Route: 048
     Dates: start: 20231018, end: 20231020
  18. Potassium chloride sustained-release tablets [Concomitant]
     Route: 048
     Dates: start: 20231016, end: 20231016
  19. Potassium chloride sustained-release tablets [Concomitant]
     Route: 042
     Dates: start: 20231111, end: 20231113
  20. PALONOSETRON HYDROCHLORIDE [Concomitant]
     Active Substance: PALONOSETRON HYDROCHLORIDE
     Route: 048
     Dates: start: 20231018, end: 20231018
  21. PALONOSETRON HYDROCHLORIDE [Concomitant]
     Active Substance: PALONOSETRON HYDROCHLORIDE
     Route: 048
     Dates: start: 20231016, end: 20231016
  22. PALONOSETRON HYDROCHLORIDE [Concomitant]
     Active Substance: PALONOSETRON HYDROCHLORIDE
     Route: 048
     Dates: start: 20231111, end: 20231112
  23. PALONOSETRON HYDROCHLORIDE [Concomitant]
     Active Substance: PALONOSETRON HYDROCHLORIDE
     Route: 048
     Dates: start: 20231019, end: 20231019
  24. HERBALS\DIAMMONIUM GLYCYRRHIZINATE [Concomitant]
     Active Substance: HERBALS\DIAMMONIUM GLYCYRRHIZINATE
     Route: 048
     Dates: start: 20231111, end: 20231201
  25. HERBALS\DIAMMONIUM GLYCYRRHIZINATE [Concomitant]
     Active Substance: HERBALS\DIAMMONIUM GLYCYRRHIZINATE
     Route: 048
     Dates: start: 20231018, end: 20231107
  26. LEUCOGEN [Concomitant]
     Active Substance: LEUCOGEN
     Route: 048
     Dates: start: 20231018, end: 20231102
  27. LEUCOGEN [Concomitant]
     Active Substance: LEUCOGEN
     Route: 048
     Dates: start: 20231111, end: 20231126
  28. Cefaclor extended-release tablets [Concomitant]
     Route: 048
     Dates: start: 20231018, end: 20231029
  29. Cefaclor extended-release tablets [Concomitant]
     Route: 048
     Dates: start: 20231111, end: 20231122
  30. Sodium bicarbonate injection 5% [Concomitant]
     Route: 042
     Dates: start: 20231016, end: 20231020
  31. Sodium bicarbonate injection 5% [Concomitant]
     Route: 042
     Dates: start: 20231110, end: 20231113
  32. Sodium bicarbonate injection 5% [Concomitant]
     Route: 042
     Dates: start: 20231111, end: 20231113
  33. FEBUXOSTAT [Concomitant]
     Active Substance: FEBUXOSTAT
     Route: 048
     Dates: start: 20231017, end: 20231027
  34. FEBUXOSTAT [Concomitant]
     Active Substance: FEBUXOSTAT
     Route: 048
     Dates: start: 20231113, end: 20231122
  35. FEBUXOSTAT [Concomitant]
     Active Substance: FEBUXOSTAT
     Route: 048
     Dates: start: 20231016, end: 20231020
  36. LIDOCAINE HYDROCHLORIDE [Concomitant]
     Active Substance: LIDOCAINE HYDROCHLORIDE
     Route: 058
     Dates: start: 20231016, end: 20231016
  37. LIDOCAINE HYDROCHLORIDE [Concomitant]
     Active Substance: LIDOCAINE HYDROCHLORIDE
     Route: 058
     Dates: start: 20231110, end: 20231110
  38. Acetaminophen and oxycodone tablets [Concomitant]
     Route: 048
     Dates: start: 20231016
  39. METHYLPREDNISOLONE SODIUM SUCCINATE [Concomitant]
     Active Substance: METHYLPREDNISOLONE SODIUM SUCCINATE
     Route: 042
     Dates: start: 20231018, end: 20231018
  40. METHYLPREDNISOLONE SODIUM SUCCINATE [Concomitant]
     Active Substance: METHYLPREDNISOLONE SODIUM SUCCINATE
     Route: 042
     Dates: start: 20231201, end: 20231201
  41. Compound acetaminophen tablets [Concomitant]
     Route: 048
     Dates: start: 20231019, end: 20231019
  42. Compound acetaminophen tablets [Concomitant]
     Route: 048
     Dates: start: 20231111, end: 20231111
  43. OMEPRAZOLE [Concomitant]
     Active Substance: OMEPRAZOLE
     Route: 048
     Dates: start: 20231018, end: 20231018
  44. Pegylated recombinant human granulocyte stimulating factor [Concomitant]
     Route: 058
     Dates: start: 20231111, end: 20231114
  45. Pegylated recombinant human granulocyte stimulating factor [Concomitant]
     Route: 058
     Dates: start: 20231018, end: 20231021
  46. ONDANSETRON HYDROCHLORIDE [Concomitant]
     Active Substance: ONDANSETRON HYDROCHLORIDE
     Route: 042
     Dates: start: 20231019, end: 20231019
  47. ACETAMINOPHEN [Concomitant]
     Active Substance: ACETAMINOPHEN
     Route: 048
     Dates: start: 20231016, end: 20231020
  48. ACETAMINOPHEN [Concomitant]
     Active Substance: ACETAMINOPHEN
     Route: 048
     Dates: start: 20231018, end: 20231020
  49. Cefazoxime sodium [Concomitant]
     Route: 042
     Dates: start: 20231019, end: 20231019
  50. DESLANOSIDE [Concomitant]
     Active Substance: DESLANOSIDE
     Route: 042
     Dates: start: 20231201, end: 20231201
  51. GLUTATHIONE [Concomitant]
     Active Substance: GLUTATHIONE

REACTIONS (10)
  - Hypokalaemia [Recovered/Resolved]
  - Aspartate aminotransferase increased [Recovered/Resolved]
  - Hypoproteinaemia [Not Recovered/Not Resolved]
  - Hypokalaemia [Not Recovered/Not Resolved]
  - Anaemia [Not Recovered/Not Resolved]
  - Blood uric acid increased [Not Recovered/Not Resolved]
  - Pyrexia [Recovered/Resolved]
  - Lymphocyte count decreased [Not Recovered/Not Resolved]
  - Weight decreased [Unknown]
  - Pyrexia [Recovered/Resolved]

NARRATIVE: CASE EVENT DATE: 20231019
